FAERS Safety Report 21720060 (Version 2)
Quarter: 2023Q2

REPORT INFORMATION
  Report Type: Spontaneous
  Country: CA (occurrence: CA)
  Receive Date: 20221213
  Receipt Date: 20230424
  Transmission Date: 20230722
  Serious: Yes (Other)
  Sender: FDA-Public Use
  Company Number: CA-AUROBINDO-AUR-APL-2022-051476

PATIENT
  Age: 80 Year
  Sex: Male

DRUGS (15)
  1. CEFUROXIME [Suspect]
     Active Substance: CEFUROXIME
     Indication: Product used for unknown indication
     Dosage: UNK
     Route: 065
  2. HYDROCORTISONE [Suspect]
     Active Substance: HYDROCORTISONE
     Indication: Crohn^s disease
     Dosage: UNK, TWO TIMES A DAY
     Route: 061
  3. HYDROCORTISONE [Suspect]
     Active Substance: HYDROCORTISONE
     Indication: Chronic spontaneous urticaria
  4. MONTELUKAST [Suspect]
     Active Substance: MONTELUKAST SODIUM
     Indication: Crohn^s disease
     Dosage: 10 MILLIGRAM, ONCE A DAY
     Route: 048
  5. MONTELUKAST [Suspect]
     Active Substance: MONTELUKAST SODIUM
     Indication: Chronic spontaneous urticaria
  6. CLOBETASOL PROPIONATE [Suspect]
     Active Substance: CLOBETASOL PROPIONATE
     Indication: Crohn^s disease
     Dosage: UNK
     Route: 061
  7. CLOBETASOL PROPIONATE [Suspect]
     Active Substance: CLOBETASOL PROPIONATE
     Indication: Chronic spontaneous urticaria
  8. GRAMICIDIN;NEOMYCIN SULFATE;NYSTATIN;TRIAMCINOLONE ACETONIDE [Concomitant]
     Indication: Crohn^s disease
     Dosage: UNK (3 EVERY 1 DAY)
     Route: 061
  9. GRAMICIDIN;NEOMYCIN SULFATE;NYSTATIN;TRIAMCINOLONE ACETONIDE [Concomitant]
     Indication: Chronic spontaneous urticaria
  10. HYDROXYZINE [Concomitant]
     Active Substance: HYDROXYZINE HYDROCHLORIDE
     Indication: Crohn^s disease
     Dosage: 2 DOSAGE FORM, ONCE A DAY
     Route: 048
  11. HYDROXYZINE [Concomitant]
     Active Substance: HYDROXYZINE HYDROCHLORIDE
     Indication: Chronic spontaneous urticaria
  12. MENTHOL [Concomitant]
     Active Substance: MENTHOL
     Indication: Product used for unknown indication
     Dosage: UNK
     Route: 065
  13. PREDNISONE [Concomitant]
     Active Substance: PREDNISONE
     Indication: Product used for unknown indication
     Dosage: UNK
     Route: 048
  14. Reactine [Concomitant]
     Indication: Crohn^s disease
     Dosage: 1 DOSAGE FORM, TWO TIMES A DAY
     Route: 048
  15. Reactine [Concomitant]
     Indication: Chronic spontaneous urticaria

REACTIONS (2)
  - Hypersensitivity [Unknown]
  - Off label use [Unknown]
